FAERS Safety Report 20865137 (Version 1)
Quarter: 2022Q2

REPORT INFORMATION
  Report Type: Spontaneous
  Country: IR (occurrence: IR)
  Receive Date: 20220524
  Receipt Date: 20220524
  Transmission Date: 20220720
  Serious: Yes (Congenital Anomaly, Other)
  Sender: FDA-Public Use
  Company Number: IR-INGENUS PHARMACEUTICALS, LLC-2022INF000042

PATIENT
  Age: 24 Month
  Sex: Male

DRUGS (1)
  1. CABERGOLINE [Suspect]
     Active Substance: CABERGOLINE
     Indication: Maternal exposure during pregnancy
     Dosage: 0.5 MILLIGRAM TWICE A WEEK
     Route: 064

REACTIONS (1)
  - Syndactyly [Unknown]
